FAERS Safety Report 8193966-8 (Version None)
Quarter: 2012Q1

REPORT INFORMATION
  Report Type: 
  Country: None (occurrence: None)
  Receive Date: 20120308
  Receipt Date: 20120229
  Transmission Date: 20120608
  Serious: Yes (Other)
  Sender: FDA-Public Use
  Company Number: DE-VERTEX PHARMACEUTICALS INC.-AE-2011-001732

PATIENT
  Age: 54 Year
  Sex: Male
  Weight: 54 kg

DRUGS (3)
  1. RIBAVIRIN [Concomitant]
     Indication: HEPATITIS C
     Dates: start: 20110907
  2. VX-950 [Suspect]
     Indication: HEPATITIS C
     Route: 048
     Dates: start: 20110907
  3. PEG-INTRON [Concomitant]
     Indication: HEPATITIS C
     Dates: start: 20110907

REACTIONS (1)
  - RASH GENERALISED [None]
